FAERS Safety Report 7350639-9 (Version None)
Quarter: 2011Q1

REPORT INFORMATION
  Report Type: 
  Country: None (occurrence: None)
  Receive Date: 20110314
  Receipt Date: 20100930
  Transmission Date: 20110831
  Serious: Yes (Hospitalization)
  Sender: FDA-Public Use
  Company Number: US-BAYER-201014097NA

PATIENT
  Sex: Female
  Weight: 57 kg

DRUGS (6)
  1. YAZ [Suspect]
     Indication: CONTRACEPTION
     Dosage: UNK
     Route: 048
     Dates: start: 20070401, end: 20080601
  2. MULTI-VITAMIN [Concomitant]
  3. VALERIAN ROOT [Concomitant]
     Indication: SLEEP DISORDER
     Dosage: UNK
     Dates: start: 20090501, end: 20090801
  4. ASCORBIC ACID [Concomitant]
  5. IBUPROFEN [Concomitant]
     Dosage: UNK
     Dates: start: 19990101
  6. UNCODEABLE ^UNCLASSIFIABLE^ [Concomitant]
     Indication: SLEEP DISORDER
     Dosage: UNK
     Dates: start: 20090601, end: 20091101

REACTIONS (4)
  - GALLBLADDER DISORDER [None]
  - BILIARY DYSKINESIA [None]
  - BILIARY COLIC [None]
  - PREMATURE LABOUR [None]
